FAERS Safety Report 8335838-1 (Version None)
Quarter: 2012Q2

REPORT INFORMATION
  Report Type: 
  Country: None (occurrence: None)
  Receive Date: 20120502
  Receipt Date: 20120502
  Transmission Date: 20120825
  Serious: No
  Sender: FDA-Public Use
  Company Number: None

PATIENT
  Sex: Male
  Weight: 81.6475 kg

DRUGS (2)
  1. MEPROBAMATE [Suspect]
     Indication: NERVOUSNESS
     Dosage: 400MG + 200MG 3 DAILY ORAL
     Route: 048
     Dates: start: 20040101
  2. MEPROBAMATE [Suspect]
     Indication: THERAPEUTIC PRODUCT INEFFECTIVE
     Dosage: 400MG + 200MG 3 DAILY ORAL
     Route: 048
     Dates: start: 20040101

REACTIONS (2)
  - PRODUCT SUBSTITUTION ISSUE [None]
  - DRUG INEFFECTIVE [None]
